FAERS Safety Report 24541154 (Version 1)
Quarter: 2024Q4

REPORT INFORMATION
  Report Type: Spontaneous
  Country: GR (occurrence: GR)
  Receive Date: 20241023
  Receipt Date: 20241023
  Transmission Date: 20250115
  Serious: Yes (Other)
  Sender: NOVARTIS
  Company Number: GR-002147023-NVSC2024GR204313

PATIENT
  Age: 49 Year
  Sex: Female

DRUGS (2)
  1. SIPONIMOD [Suspect]
     Active Substance: SIPONIMOD
     Indication: Secondary progressive multiple sclerosis
     Dosage: 2 MG (1 X 1)
     Route: 065
  2. SIPONIMOD [Suspect]
     Active Substance: SIPONIMOD
     Dosage: 1 MG (1 X 1)
     Route: 065

REACTIONS (7)
  - Lymphopenia [Recovered/Resolved]
  - Hemiparesis [Unknown]
  - Gait disturbance [Unknown]
  - Mental disorder [Unknown]
  - Anal cyst [Unknown]
  - Cognitive disorder [Unknown]
  - Gait spastic [Unknown]
